FAERS Safety Report 4501714-5 (Version None)
Quarter: 2004Q3

REPORT INFORMATION
  Report Type: 
  Country: None (occurrence: None)
  Receive Date: 20040927
  Receipt Date: 20040525
  Transmission Date: 20050211
  Serious: No
  Sender: FDA-Public Use
  Company Number: USA040363642

PATIENT
  Age: 10 Year
  Sex: Female
  Weight: 26 kg

DRUGS (1)
  1. STRATTERA [Suspect]
     Indication: ATTENTION DEFICIT/HYPERACTIVITY DISORDER
     Dosage: 40 MG DAY

REACTIONS (3)
  - DRUG EFFECT DECREASED [None]
  - PRESCRIBED OVERDOSE [None]
  - TACHYCARDIA [None]
